FAERS Safety Report 23149573 (Version 1)
Quarter: 2023Q4

REPORT INFORMATION
  Report Type: Spontaneous
  Country: US (occurrence: None)
  Receive Date: 20231104
  Receipt Date: 20231104
  Transmission Date: 20240109
  Serious: No
  Sender: FDA-Public Use
  Company Number: None

PATIENT
  Age: 69 Year
  Sex: Female

DRUGS (1)
  1. IBANDRONATE SODIUM [Suspect]
     Active Substance: IBANDRONATE SODIUM
     Indication: Osteoporosis
     Dosage: OTHER QUANTITY : 1 TABLET(S);?FREQUENCY : MONTHLY;?
     Route: 048
     Dates: start: 20231101, end: 20231104

REACTIONS (1)
  - Back pain [None]

NARRATIVE: CASE EVENT DATE: 20231102
